FAERS Safety Report 9083979 (Version 1)
Quarter: 2013Q1

REPORT INFORMATION
  Report Type: Spontaneous
  Country: US (occurrence: US)
  Receive Date: 20130130
  Receipt Date: 20130130
  Transmission Date: 20140127
  Serious: No
  Sender: FDA-Public Use
  Company Number: US-ABBOTT-12P-163-0967779-00

PATIENT
  Age: 15 None
  Sex: Female
  Weight: 70.37 kg

DRUGS (3)
  1. HUMIRA 40 MG/0.8 ML PEN [Suspect]
     Indication: CROHN^S DISEASE
     Dates: start: 2012, end: 2012
  2. HUMIRA 40 MG/0.8 ML PEN [Suspect]
     Dates: start: 2012, end: 2012
  3. HUMIRA 40 MG/0.8 ML PEN [Suspect]
     Dates: start: 2012

REACTIONS (6)
  - C-reactive protein increased [Unknown]
  - Injection site pain [Not Recovered/Not Resolved]
  - Anaemia [Unknown]
  - Haemoglobin decreased [Unknown]
  - Haematocrit decreased [Unknown]
  - Blood iron decreased [Unknown]
